FAERS Safety Report 10072055 (Version 1)
Quarter: 2014Q2

REPORT INFORMATION
  Report Type: Spontaneous
  Country: US (occurrence: US)
  Receive Date: 20140411
  Receipt Date: 20140411
  Transmission Date: 20141212
  Serious: No
  Sender: FDA-Public Use
  Company Number: US-009507513-1404USA004223

PATIENT
  Sex: Male

DRUGS (2)
  1. JANUMET [Suspect]
     Route: 048
  2. JANUVIA [Suspect]
     Dosage: UNK

REACTIONS (3)
  - Abdominal discomfort [Recovered/Resolved]
  - Diarrhoea [Recovered/Resolved]
  - Abdominal discomfort [Recovered/Resolved]
